FAERS Safety Report 7309320-4 (Version None)
Quarter: 2011Q1

REPORT INFORMATION
  Report Type: 
  Country: None (occurrence: None)
  Receive Date: 20110223
  Receipt Date: 20110218
  Transmission Date: 20110831
  Serious: Yes (Other)
  Sender: FDA-Public Use
  Company Number: MX-ROCHE-761306

PATIENT
  Age: 51 Year
  Sex: Female

DRUGS (3)
  1. DOCETAXEL [Concomitant]
     Route: 042
  2. XELODA [Concomitant]
     Route: 048
  3. AVASTIN [Suspect]
     Route: 042
     Dates: start: 20101005, end: 20110127

REACTIONS (1)
  - SKIN NECROSIS [None]
